FAERS Safety Report 12392839 (Version 3)
Quarter: 2017Q2

REPORT INFORMATION
  Report Type: Report from Study
  Country: BE (occurrence: BE)
  Receive Date: 20160523
  Receipt Date: 20170530
  Transmission Date: 20170830
  Serious: Yes (Other)
  Sender: FDA-Public Use
  Company Number: BE-BEH-2016060480

PATIENT
  Sex: Female

DRUGS (1)
  1. HIZENTRA [Suspect]
     Active Substance: HUMAN IMMUNOGLOBULIN G
     Indication: PRODUCT USED FOR UNKNOWN INDICATION
     Dosage: UNK
     Route: 065
     Dates: start: 20170111

REACTIONS (7)
  - Chest injury [Recovered/Resolved]
  - Fall [Recovered/Resolved]
  - Pharyngeal inflammation [Unknown]
  - Oedema peripheral [Unknown]
  - Sinusitis [Unknown]
  - Pyrexia [Unknown]
  - Bronchitis [Unknown]
